FAERS Safety Report 24625637 (Version 1)
Quarter: 2024Q4

REPORT INFORMATION
  Report Type: Spontaneous
  Country: DE (occurrence: DE)
  Receive Date: 20241115
  Receipt Date: 20241115
  Transmission Date: 20250114
  Serious: Yes (Other)
  Sender: NOVARTIS
  Company Number: DE-002147023-NVSC2024DE220048

PATIENT
  Age: 50 Year
  Sex: Male

DRUGS (1)
  1. NILOTINIB [Suspect]
     Active Substance: NILOTINIB
     Indication: Chronic myeloid leukaemia
     Dosage: 800 MG, QD (1-0-0-0)
     Route: 048
     Dates: start: 202210

REACTIONS (6)
  - Bone marrow failure [Unknown]
  - Myelosuppression [Unknown]
  - Rash [Unknown]
  - Alopecia [Unknown]
  - Fatigue [Unknown]
  - Headache [Recovering/Resolving]

NARRATIVE: CASE EVENT DATE: 20240101
